FAERS Safety Report 23693263 (Version 1)
Quarter: 2024Q2

REPORT INFORMATION
  Report Type: Report from Study
  Country: CN (occurrence: CN)
  Receive Date: 20240401
  Receipt Date: 20240401
  Transmission Date: 20240716
  Serious: Yes (Death, Hospitalization)
  Sender: FDA-Public Use
  Company Number: CN-MYLANLABS-2024M1029644

PATIENT

DRUGS (2)
  1. ATORVASTATIN [Suspect]
     Active Substance: ATORVASTATIN
     Indication: Product used for unknown indication
     Dosage: UNK
     Route: 065
  2. HERBALS [Suspect]
     Active Substance: HERBALS
     Indication: Phytotherapy
     Dosage: UNK
     Route: 065

REACTIONS (2)
  - Hepatocellular injury [Fatal]
  - Acute hepatic failure [Fatal]
